FAERS Safety Report 6963022-2 (Version None)
Quarter: 2010Q3

REPORT INFORMATION
  Report Type: 
  Country: None (occurrence: None)
  Receive Date: 20100902
  Receipt Date: 20100823
  Transmission Date: 20110219
  Serious: Yes (Other)
  Sender: FDA-Public Use
  Company Number: GB-ELI_LILLY_AND_COMPANY-GB201006005039

PATIENT
  Sex: Male
  Weight: 104.3 kg

DRUGS (9)
  1. BYETTA [Suspect]
     Indication: DIABETES MELLITUS INADEQUATE CONTROL
     Dosage: 5 UG, 2/D
     Route: 058
     Dates: start: 20100202, end: 20100101
  2. BYETTA [Suspect]
     Dosage: 10 UG, 2/D
     Route: 058
     Dates: end: 20100601
  3. BYETTA [Suspect]
     Dosage: 5 UG, 2/D
     Route: 058
     Dates: start: 20100601
  4. RAMIPRIL [Concomitant]
     Indication: HYPERTENSION
     Dosage: 10 MG, DAILY (1/D)
     Route: 048
  5. SIMVASTATIN [Concomitant]
     Indication: BLOOD CHOLESTEROL INCREASED
     Dosage: 40 MG, DAILY (1/D)
     Route: 048
  6. IRBESARTAN [Concomitant]
     Indication: HYPERTENSION
     Dosage: 300 MG, DAILY (1/D)
     Route: 048
  7. AMLODIPINE [Concomitant]
     Indication: HYPERTENSION
     Dosage: 5 MG, DAILY (1/D)
     Route: 048
  8. BENDROFLUAZIDE [Concomitant]
     Indication: HYPERTENSION
     Dosage: 2.5 MG, DAILY (1/D)
     Route: 048
  9. PIOGLITAZONE [Concomitant]
     Indication: DIABETES MELLITUS
     Dosage: 15 MG, DAILY (1/D)
     Route: 048

REACTIONS (2)
  - DIARRHOEA [None]
  - RENAL IMPAIRMENT [None]
